FAERS Safety Report 5885202-X (Version None)
Quarter: 2008Q3

REPORT INFORMATION
  Report Type: 
  Country: None (occurrence: None)
  Receive Date: 20080916
  Receipt Date: 20080906
  Transmission Date: 20090109
  Serious: Yes (Life-Threatening, Hospitalization, Other)
  Sender: FDA-Public Use
  Company Number: US-PFIZER INC-2008074977

PATIENT
  Sex: Male

DRUGS (3)
  1. LIPITOR [Suspect]
     Dates: start: 20060101, end: 20060801
  2. PROTONIX [Concomitant]
     Indication: GASTROOESOPHAGEAL REFLUX DISEASE
     Route: 048
  3. ZYRTEC [Concomitant]
     Indication: RHINITIS ALLERGIC
     Route: 048

REACTIONS (3)
  - HEPATIC FAILURE [None]
  - LIVER FUNCTION TEST ABNORMAL [None]
  - TRANSPLANT [None]
